FAERS Safety Report 8917255 (Version 1)
Quarter: 2012Q4

REPORT INFORMATION
  Report Type: 
  Country: US (occurrence: US)
  Receive Date: 20121120
  Receipt Date: 20121120
  Transmission Date: 20130627
  Serious: Yes (Other)
  Sender: FDA-Public Use
  Company Number: US-VERTEX PHARMACEUTICAL INC.-AE-2012-006615

PATIENT
  Age: 50 None
  Sex: Male
  Weight: 115 kg

DRUGS (4)
  1. INCIVEK [Suspect]
     Indication: HEPATITIS C
     Dosage: 750 mg, tid
     Route: 048
     Dates: start: 20120506, end: 20120709
  2. PEGASYS [Concomitant]
     Indication: HEPATITIS C
     Dosage: 180 ?g, qw
     Route: 058
     Dates: start: 20120506
  3. RIBAVIRIN [Concomitant]
     Indication: HEPATITIS C
     Dosage: 3 tabs AM, 4 tabs PM
     Dates: start: 20120506
  4. RIBAVIRIN [Concomitant]
     Dosage: 1000 mg, qd

REACTIONS (7)
  - Stevens-Johnson syndrome [Not Recovered/Not Resolved]
  - Depression [Not Recovered/Not Resolved]
  - Headache [Not Recovered/Not Resolved]
  - Injection site pain [Not Recovered/Not Resolved]
  - Injection site nodule [Not Recovered/Not Resolved]
  - Alopecia [Not Recovered/Not Resolved]
  - Anaemia [Not Recovered/Not Resolved]
